FAERS Safety Report 21011242 (Version 1)
Quarter: 2022Q2

REPORT INFORMATION
  Report Type: Spontaneous
  Country: US (occurrence: US)
  Receive Date: 20220627
  Receipt Date: 20220627
  Transmission Date: 20220721
  Serious: Yes (Other)
  Sender: FDA-Public Use
  Company Number: US-MYLANLABS-2022M1048715

PATIENT
  Age: 28 Year
  Sex: Female

DRUGS (6)
  1. CALCIUM [Suspect]
     Active Substance: CALCIUM
     Indication: Chelation therapy
     Dosage: UNK
     Route: 042
  2. FAMOTIDINE [Suspect]
     Active Substance: FAMOTIDINE
     Indication: Prenatal care
     Dosage: UNK
     Route: 065
  3. VITAMIN D [Suspect]
     Active Substance: VITAMIN D NOS
     Indication: Prenatal care
     Dosage: UNK
     Route: 065
  4. EDETATE CALCIUM DISODIUM [Suspect]
     Active Substance: EDETATE CALCIUM DISODIUM
     Indication: Chelation therapy
     Dosage: UNK
     Route: 042
  5. IRON [Suspect]
     Active Substance: IRON
     Indication: Prenatal care
     Dosage: UNK
     Route: 065
  6. SUCCIMER [Suspect]
     Active Substance: SUCCIMER
     Indication: Chelation therapy
     Dosage: UNK (DURATION 1.5 DAYS)
     Route: 048

REACTIONS (3)
  - Rebound effect [Unknown]
  - Blood lead increased [Unknown]
  - Maternal exposure during pregnancy [Unknown]
